FAERS Safety Report 15427773 (Version 1)
Quarter: 2018Q3

REPORT INFORMATION
  Report Type: Spontaneous
  Country: DE (occurrence: DE)
  Receive Date: 20180926
  Receipt Date: 20180926
  Transmission Date: 20181010
  Serious: Yes (Other)
  Sender: FDA-Public Use
  Company Number: DE-PROVELL PHARMACEUTICALS-2055350

PATIENT
  Sex: Male

DRUGS (4)
  1. EUTHYROX [Suspect]
     Active Substance: LEVOTHYROXINE SODIUM
     Dates: start: 201703, end: 2018
  2. EUTHYROX [Suspect]
     Active Substance: LEVOTHYROXINE SODIUM
     Indication: AUTOIMMUNE THYROIDITIS
     Dates: start: 2016
  3. EUTHYROX [Suspect]
     Active Substance: LEVOTHYROXINE SODIUM
  4. EUTHYROX [Suspect]
     Active Substance: LEVOTHYROXINE SODIUM

REACTIONS (12)
  - Feeling abnormal [Recovering/Resolving]
  - Fructose intolerance [None]
  - Anxiety [Recovering/Resolving]
  - Anti-thyroid antibody positive [Not Recovered/Not Resolved]
  - Dizziness [Recovering/Resolving]
  - Alanine aminotransferase increased [None]
  - Blood cholesterol increased [None]
  - Feeling of despair [Recovering/Resolving]
  - Tachycardia [Recovering/Resolving]
  - Lactose intolerance [None]
  - Panic attack [Recovering/Resolving]
  - Irritability [Recovering/Resolving]

NARRATIVE: CASE EVENT DATE: 2016
